FAERS Safety Report 7312113 (Version 4)
Quarter: 2012Q4

REPORT INFORMATION
  Report Type: 
  Country: JP (occurrence: JP)
  Receive Date: 20100310
  Receipt Date: 20121001
  Transmission Date: 20130627
  Serious: Yes (Hospitalization)
  Sender: FDA-Public Use
  Company Number: PHHY2010JP12431

PATIENT
  Age: 23 Year
  Sex: Male

DRUGS (1)
  1. TEGRETOL [Suspect]
     Indication: TEMPORAL LOBE EPILEPSY
     Dosage: 400 mg, UNK
     Route: 048

REACTIONS (9)
  - Suicidal behaviour [Recovered/Resolved]
  - Impulsive behaviour [Recovered/Resolved]
  - Suicide attempt [Recovered/Resolved]
  - Multiple fractures [Recovered/Resolved]
  - Foot fracture [Recovered/Resolved]
  - Compression fracture [Recovered/Resolved]
  - Spinal compression fracture [Recovered/Resolved]
  - Ulna fracture [Recovered/Resolved]
  - Ankle fracture [Recovered/Resolved]
